FAERS Safety Report 16099796 (Version 1)
Quarter: 2019Q1

REPORT INFORMATION
  Report Type: Spontaneous
  Country: US (occurrence: US)
  Receive Date: 20190321
  Receipt Date: 20190321
  Transmission Date: 20190418
  Serious: Yes (Other)
  Sender: FDA-Public Use
  Company Number: US-BAYER-2019-054909

PATIENT
  Age: 63 Year
  Sex: Female
  Weight: 75 kg

DRUGS (2)
  1. MIRALAX [Suspect]
     Active Substance: POLYETHYLENE GLYCOL 3350
     Indication: GASTROINTESTINAL DISORDER
     Dosage: 17 G, QOD
     Route: 048
     Dates: start: 2009, end: 20190317
  2. FIBER [Concomitant]
     Active Substance: PSYLLIUM HUSK
     Dosage: UNK

REACTIONS (5)
  - Spinal fusion surgery [None]
  - Product taste abnormal [Unknown]
  - Spinal fusion surgery [None]
  - Poor quality product administered [Unknown]
  - Product solubility abnormal [None]

NARRATIVE: CASE EVENT DATE: 2016
